FAERS Safety Report 22127567 (Version 3)
Quarter: 2023Q2

REPORT INFORMATION
  Report Type: Spontaneous
  Country: US (occurrence: US)
  Receive Date: 20230323
  Receipt Date: 20230518
  Transmission Date: 20230721
  Serious: No
  Sender: FDA-Public Use
  Company Number: US-AMGEN-USASP2023045327

PATIENT
  Age: 71 Year
  Sex: Male
  Weight: 79.2 kg

DRUGS (1)
  1. NEULASTA [Suspect]
     Active Substance: PEGFILGRASTIM
     Indication: Bladder cancer
     Dosage: UNK
     Route: 065

REACTIONS (1)
  - Product communication issue [Recovered/Resolved]

NARRATIVE: CASE EVENT DATE: 20220425
